FAERS Safety Report 7467852-2 (Version None)
Quarter: 2011Q2

REPORT INFORMATION
  Report Type: 
  Country: None (occurrence: None)
  Receive Date: 20110505
  Receipt Date: 20110505
  Transmission Date: 20111010
  Serious: Yes (Other)
  Sender: FDA-Public Use
  Company Number: None

PATIENT
  Age: 58 Year
  Sex: Female
  Weight: 69.8539 kg

DRUGS (1)
  1. VENLAFAXINE [Suspect]
     Indication: FATIGUE
     Dosage: 1 2X PO
     Route: 048
     Dates: start: 20110429, end: 20110429

REACTIONS (23)
  - ABDOMINAL PAIN [None]
  - SLEEP DISORDER [None]
  - HEADACHE [None]
  - GASTROINTESTINAL SOUNDS ABNORMAL [None]
  - DISTURBANCE IN ATTENTION [None]
  - FEELING ABNORMAL [None]
  - DISORIENTATION [None]
  - ARTHRALGIA [None]
  - FATIGUE [None]
  - GASTROINTESTINAL PAIN [None]
  - HYPERHIDROSIS [None]
  - MOTOR DYSFUNCTION [None]
  - PAIN IN EXTREMITY [None]
  - TREMOR [None]
  - SEROTONIN SYNDROME [None]
  - NAUSEA [None]
  - CHILLS [None]
  - HEART RATE INCREASED [None]
  - DIARRHOEA [None]
  - SPEECH DISORDER [None]
  - DYSSTASIA [None]
  - ASTHENIA [None]
  - DIZZINESS [None]
